FAERS Safety Report 18458094 (Version 4)
Quarter: 2020Q4

REPORT INFORMATION
  Report Type: Report from Study
  Country: US (occurrence: US)
  Receive Date: 20201103
  Receipt Date: 20201210
  Transmission Date: 20210114
  Serious: Yes (Other)
  Sender: FDA-Public Use
  Company Number: US-SHIRE-US202024088

PATIENT
  Sex: Female

DRUGS (21)
  1. TEDUGLUTIDE [Suspect]
     Active Substance: TEDUGLUTIDE
     Indication: SHORT-BOWEL SYNDROME
     Dosage: 2 MILLIGRAM, QOD
     Route: 058
     Dates: start: 20180926
  2. TEDUGLUTIDE [Suspect]
     Active Substance: TEDUGLUTIDE
     Dosage: 0.2 MILLIGRAM
     Route: 065
     Dates: start: 20181015
  3. TEDUGLUTIDE [Suspect]
     Active Substance: TEDUGLUTIDE
     Dosage: 2 MILLIGRAM, QOD
     Route: 058
     Dates: start: 20180926
  4. TEDUGLUTIDE [Suspect]
     Active Substance: TEDUGLUTIDE
     Dosage: 2 MILLIGRAM, QOD
     Route: 058
     Dates: start: 20180926
  5. TEDUGLUTIDE [Suspect]
     Active Substance: TEDUGLUTIDE
     Dosage: 2 MILLIGRAM, QOD
     Route: 058
     Dates: start: 202007
  6. TEDUGLUTIDE [Suspect]
     Active Substance: TEDUGLUTIDE
     Dosage: 0.200 UNK
     Dates: start: 20181015
  7. TEDUGLUTIDE [Suspect]
     Active Substance: TEDUGLUTIDE
     Dosage: 0.2 MILLIGRAM
     Route: 065
     Dates: start: 20181015
  8. TEDUGLUTIDE [Suspect]
     Active Substance: TEDUGLUTIDE
     Dosage: 2 MILLIGRAM, QOD
     Route: 058
     Dates: start: 202007
  9. TEDUGLUTIDE [Suspect]
     Active Substance: TEDUGLUTIDE
     Dosage: 2 MILLIGRAM, QOD
     Route: 058
     Dates: start: 202007
  10. TEDUGLUTIDE [Suspect]
     Active Substance: TEDUGLUTIDE
     Dosage: 0.200 UNK
     Dates: start: 20181015
  11. TEDUGLUTIDE [Suspect]
     Active Substance: TEDUGLUTIDE
     Dosage: 0.200 UNK
     Dates: start: 20181015
  12. VICODIN [Concomitant]
     Active Substance: ACETAMINOPHEN\HYDROCODONE BITARTRATE
     Indication: BACK PAIN
     Route: 065
  13. TEDUGLUTIDE [Suspect]
     Active Substance: TEDUGLUTIDE
     Indication: SHORT-BOWEL SYNDROME
     Dosage: 2 MILLIGRAM, QOD
     Route: 058
     Dates: start: 20180926
  14. TEDUGLUTIDE [Suspect]
     Active Substance: TEDUGLUTIDE
     Indication: SHORT-BOWEL SYNDROME
     Dosage: 2 MILLIGRAM, QOD
     Route: 058
     Dates: start: 20180926
  15. TEDUGLUTIDE [Suspect]
     Active Substance: TEDUGLUTIDE
     Dosage: 2 MILLIGRAM, QOD
     Route: 058
     Dates: start: 202007
  16. TEDUGLUTIDE [Suspect]
     Active Substance: TEDUGLUTIDE
     Dosage: 0.2 MILLIGRAM
     Route: 065
     Dates: start: 20181015
  17. TEDUGLUTIDE [Suspect]
     Active Substance: TEDUGLUTIDE
     Dosage: 0.2 MILLIGRAM
     Route: 065
     Dates: start: 20181015
  18. TEDUGLUTIDE [Suspect]
     Active Substance: TEDUGLUTIDE
     Dosage: 2 MILLIGRAM, QOD
     Route: 058
     Dates: start: 20180926
  19. TEDUGLUTIDE [Suspect]
     Active Substance: TEDUGLUTIDE
     Dosage: 2 MILLIGRAM, QOD
     Route: 058
     Dates: start: 20180926
  20. TEDUGLUTIDE [Suspect]
     Active Substance: TEDUGLUTIDE
     Indication: SHORT-BOWEL SYNDROME
     Dosage: 2 MILLIGRAM, QOD
     Route: 058
     Dates: start: 20180926
  21. TEDUGLUTIDE [Suspect]
     Active Substance: TEDUGLUTIDE
     Dosage: 0.200 UNK
     Dates: start: 20181015

REACTIONS (11)
  - Vascular device infection [Recovered/Resolved]
  - Multiple fractures [Unknown]
  - Hernia [Not Recovered/Not Resolved]
  - Gastrointestinal haemorrhage [Unknown]
  - Drug hypersensitivity [Recovering/Resolving]
  - Sleep terror [Unknown]
  - Cholelithiasis [Unknown]
  - Malabsorption [Unknown]
  - Vomiting [Unknown]
  - Product dose omission issue [Unknown]
  - Nausea [Unknown]
